FAERS Safety Report 7065687-6 (Version None)
Quarter: 2010Q4

REPORT INFORMATION
  Report Type: 
  Country: None (occurrence: None)
  Receive Date: 20101022
  Receipt Date: 20101022
  Transmission Date: 20110411
  Serious: No
  Sender: FDA-Public Use
  Company Number: None

PATIENT
  Sex: Female
  Weight: 49.8957 kg

DRUGS (2)
  1. YASMIN [Suspect]
     Indication: ACNE
     Dosage: 1 PILL EVERY 28 DAYS ORAL
     Route: 048
     Dates: start: 20090101, end: 20100101
  2. YASMIN [Suspect]
     Indication: CONTRACEPTION
     Dosage: 1 PILL EVERY 28 DAYS ORAL
     Route: 048
     Dates: start: 20090101, end: 20100101

REACTIONS (1)
  - ALOPECIA [None]
